FAERS Safety Report 10612776 (Version 1)
Quarter: 2014Q4

REPORT INFORMATION
  Report Type: Spontaneous
  Country: FR (occurrence: FR)
  Receive Date: 20141127
  Receipt Date: 20141127
  Transmission Date: 20150529
  Serious: Yes (Other)
  Sender: FDA-Public Use
  Company Number: FR-MERCK-1411FRA012105

PATIENT
  Age: 60 Year
  Sex: Female

DRUGS (1)
  1. JANUVIA [Suspect]
     Active Substance: SITAGLIPTIN PHOSPHATE
     Indication: DIABETES MELLITUS MALNUTRITION-RELATED
     Dosage: UNK
     Route: 048
     Dates: start: 2010, end: 20141103

REACTIONS (3)
  - Rash vesicular [Recovered/Resolved with Sequelae]
  - Dermatitis bullous [Recovered/Resolved with Sequelae]
  - Lichen planus [Recovered/Resolved with Sequelae]

NARRATIVE: CASE EVENT DATE: 20140920
